FAERS Safety Report 5806049-6 (Version None)
Quarter: 2008Q3

REPORT INFORMATION
  Report Type: 
  Country: None (occurrence: None)
  Receive Date: 20080710
  Receipt Date: 20080630
  Transmission Date: 20090109
  Serious: Yes (Death, Hospitalization)
  Sender: FDA-Public Use
  Company Number: ES-ABBOTT-08P-144-0456082-00

PATIENT
  Age: 49 Year
  Sex: Male

DRUGS (2)
  1. KALETRA [Suspect]
     Indication: HIV INFECTION
     Dosage: 4 TABS DAILY, 2 TABS EVERY 12 HOURS
     Route: 048
     Dates: start: 20071201, end: 20080312
  2. KALETRA [Suspect]
     Dates: start: 20070701, end: 20071201

REACTIONS (11)
  - ALTERED STATE OF CONSCIOUSNESS [None]
  - BICYTOPENIA [None]
  - DRUG ADMINISTRATION ERROR [None]
  - HAEMATOCHEZIA [None]
  - KAPOSI'S SARCOMA [None]
  - LYMPHADENOPATHY [None]
  - LYMPHOMA [None]
  - LYMPHOPROLIFERATIVE DISORDER [None]
  - MULTIFOCAL MOTOR NEUROPATHY [None]
  - PETECHIAE [None]
  - THROMBOTIC THROMBOCYTOPENIC PURPURA [None]
